FAERS Safety Report 10305507 (Version 1)
Quarter: 2014Q3

REPORT INFORMATION
  Report Type: Spontaneous
  Country: CL (occurrence: CL)
  Receive Date: 20140715
  Receipt Date: 20140715
  Transmission Date: 20150326
  Serious: Yes (Other)
  Sender: FDA-Public Use
  Company Number: CL-PFIZER INC-2014193006

PATIENT
  Age: 83 Year
  Sex: Male

DRUGS (1)
  1. XALATAN [Suspect]
     Active Substance: LATANOPROST
     Indication: GLAUCOMA
     Dosage: UNK
     Dates: start: 2009

REACTIONS (3)
  - Visual impairment [Unknown]
  - Hypertension [Unknown]
  - Deafness [Unknown]

NARRATIVE: CASE EVENT DATE: 2009
